FAERS Safety Report 7030082-2 (Version None)
Quarter: 2010Q4

REPORT INFORMATION
  Report Type: 
  Country: None (occurrence: None)
  Receive Date: 20101006
  Receipt Date: 20100930
  Transmission Date: 20110411
  Serious: Yes (Death, Hospitalization)
  Sender: FDA-Public Use
  Company Number: BR-PFIZER INC-2010102729

PATIENT
  Age: 72 Year
  Sex: Female

DRUGS (1)
  1. CELEBRA [Suspect]
     Indication: ARTHRALGIA
     Dosage: UNK
     Route: 048
     Dates: start: 20100701

REACTIONS (1)
  - GASTROINTESTINAL HAEMORRHAGE [None]
